FAERS Safety Report 16458258 (Version 1)
Quarter: 2019Q2

REPORT INFORMATION
  Report Type: Spontaneous
  Country: US (occurrence: US)
  Receive Date: 20190620
  Receipt Date: 20190620
  Transmission Date: 20190711
  Serious: Yes (Other)
  Sender: FDA-Public Use
  Company Number: US-TEVA-2019-US-1063058

PATIENT
  Sex: Male

DRUGS (1)
  1. WARFARIN [Suspect]
     Active Substance: WARFARIN
     Indication: DEEP VEIN THROMBOSIS
     Route: 065
     Dates: start: 201905

REACTIONS (9)
  - Fatigue [Unknown]
  - Decreased appetite [Unknown]
  - Tremor [Unknown]
  - Feeling hot [Unknown]
  - Hypersensitivity [Unknown]
  - Skin discolouration [Unknown]
  - Blue toe syndrome [Unknown]
  - Dyspnoea [Unknown]
  - Poisoning [Unknown]

NARRATIVE: CASE EVENT DATE: 201905
